FAERS Safety Report 6835585-9 (Version None)
Quarter: 2010Q3

REPORT INFORMATION
  Report Type: 
  Country: None (occurrence: None)
  Receive Date: 20100713
  Receipt Date: 20100630
  Transmission Date: 20110219
  Serious: Yes (Hospitalization)
  Sender: FDA-Public Use
  Company Number: US-ELI_LILLY_AND_COMPANY-US201005007366

PATIENT
  Sex: Female
  Weight: 55.782 kg

DRUGS (14)
  1. FORTEO [Suspect]
     Indication: MULTIPLE FRACTURES
     Dosage: 20 UG, DAILY (1/D)
     Dates: start: 20100301
  2. ASPIRIN [Concomitant]
  3. LEVOXYL [Concomitant]
  4. VITAMIN D3 [Concomitant]
  5. CALCIUM W/VITAMIN D NOS [Concomitant]
  6. ISOSORBIDE [Concomitant]
  7. METOPROLOL [Concomitant]
  8. VITAMIN C [Concomitant]
  9. MULTI-VITAMIN [Concomitant]
  10. LISINOPRIL [Concomitant]
  11. PLAVIX [Concomitant]
  12. SIMVASTATIN [Concomitant]
  13. COSOPT [Concomitant]
  14. LUMIGAN [Concomitant]

REACTIONS (2)
  - APPENDICITIS PERFORATED [None]
  - MYOCARDIAL INFARCTION [None]
